FAERS Safety Report 6857339-X (Version None)
Quarter: 2010Q3

REPORT INFORMATION
  Report Type: 
  Country: None (occurrence: None)
  Receive Date: 20100719
  Receipt Date: 20100709
  Transmission Date: 20110219
  Serious: Yes (Other)
  Sender: FDA-Public Use
  Company Number: US-JNJFOC-20100704180

PATIENT
  Sex: Female
  Weight: 71.67 kg

DRUGS (1)
  1. ORTHO TRI-CYCLEN [Suspect]
     Indication: OVARIAN CYST
     Route: 048

REACTIONS (6)
  - ANAEMIA [None]
  - ATTENTION DEFICIT/HYPERACTIVITY DISORDER [None]
  - BLADDER PAIN [None]
  - MENORRHAGIA [None]
  - MENSTRUATION IRREGULAR [None]
  - OFF LABEL USE [None]
